FAERS Safety Report 11782469 (Version 4)
Quarter: 2016Q1

REPORT INFORMATION
  Report Type: Spontaneous
  Country: AU (occurrence: AU)
  Receive Date: 20151127
  Receipt Date: 20160304
  Transmission Date: 20160525
  Serious: Yes (Death, Life-Threatening, Hospitalization, Disabling, Other)
  Sender: FDA-Public Use
  Company Number: AU-009507513-1511AUS013364

PATIENT
  Age: 79 Year
  Sex: Male
  Weight: 75 kg

DRUGS (6)
  1. KEYTRUDA [Suspect]
     Active Substance: PEMBROLIZUMAB
     Indication: MESOTHELIOMA
     Dosage: 150 MG, ONCE
     Route: 042
     Dates: start: 20151008
  2. METOPROLOL. [Concomitant]
     Active Substance: METOPROLOL
     Dosage: 50 MG, BID
     Route: 048
     Dates: end: 20151020
  3. AZITHROMYCIN ANHYDROUS. [Concomitant]
     Active Substance: AZITHROMYCIN ANHYDROUS
     Dosage: 500 MG, DAILY
     Route: 042
     Dates: start: 20151013, end: 20151020
  4. LASIX [Concomitant]
     Active Substance: FUROSEMIDE
     Dosage: 40 MG, BID
     Route: 042
     Dates: start: 20151013, end: 20151020
  5. CEFTRIAXONE. [Concomitant]
     Active Substance: CEFTRIAXONE
     Dosage: 2 G, DAILY
     Route: 042
     Dates: start: 20151013, end: 20151020
  6. PIPERACILLIN AND TAZOBACTAM [Concomitant]
     Active Substance: PIPERACILLIN SODIUM\TAZOBACTAM SODIUM
     Dosage: 4G/0.5G, TID
     Route: 042
     Dates: start: 20151013, end: 20151020

REACTIONS (4)
  - Product use issue [Unknown]
  - Respiratory failure [Unknown]
  - Mesothelioma [Fatal]
  - Disease progression [Fatal]

NARRATIVE: CASE EVENT DATE: 201510
